FAERS Safety Report 6003737-6 (Version None)
Quarter: 2008Q4

REPORT INFORMATION
  Report Type: 
  Country: None (occurrence: None)
  Receive Date: 20081212
  Receipt Date: 20081127
  Transmission Date: 20090506
  Serious: Yes (Hospitalization, Disabling, Other)
  Sender: FDA-Public Use
  Company Number: 20699

PATIENT
  Age: 63 Year
  Sex: Female
  Weight: 55 kg

DRUGS (9)
  1. VINORELBINE [Suspect]
     Indication: NON-SMALL CELL LUNG CANCER
     Dosage: 38 MG TOTAL IV
     Route: 042
     Dates: start: 20080904, end: 20080904
  2. VINORELBINE [Suspect]
     Indication: NON-SMALL CELL LUNG CANCER
     Dates: start: 20080911, end: 20080911
  3. CEFTRIAXONE [Concomitant]
  4. CIPROFLOXACIN HCL [Concomitant]
  5. CISPLATIN [Concomitant]
  6. CLARITHROMYCIN [Concomitant]
  7. DEXAMETHASONE [Concomitant]
  8. GENTAMICIN [Concomitant]
  9. TAZOCIN [Concomitant]

REACTIONS (2)
  - RENAL FAILURE ACUTE [None]
  - VASCULITIS [None]
